FAERS Safety Report 9842740 (Version 1)
Quarter: 2014Q1

REPORT INFORMATION
  Report Type: Spontaneous
  Country: US (occurrence: US)
  Receive Date: 20140124
  Receipt Date: 20140124
  Transmission Date: 20141002
  Serious: Yes (Disabling)
  Sender: FDA-Public Use
  Company Number: US-GE HEALTHCARE MEDICAL DIAGNOSTICS-OSCN-PR-1312S-0140

PATIENT
  Age: 46 Year
  Sex: Female

DRUGS (35)
  1. OMNISCAN [Suspect]
     Indication: RENAL CANCER
     Route: 042
     Dates: start: 20050315, end: 20050315
  2. OMNISCAN [Suspect]
     Indication: NEPHRECTOMY
     Route: 042
     Dates: start: 20060214, end: 20060214
  3. OMNISCAN [Suspect]
     Indication: CHILLS
     Route: 042
     Dates: start: 20060703, end: 20060703
  4. OMNISCAN [Suspect]
     Indication: PYREXIA
     Route: 042
     Dates: start: 20060808, end: 20060808
  5. OMNISCAN [Suspect]
     Indication: ASTHENIA
  6. OMNISCAN [Suspect]
     Indication: ABDOMINAL PAIN
  7. OMNISCAN [Suspect]
     Indication: PARAESTHESIA
  8. OMNISCAN [Suspect]
     Indication: SYNCOPE
  9. GADOLINIUM (UNSPECIFIED) [Suspect]
     Indication: PRODUCT USED FOR UNKNOWN INDICATION
     Route: 042
     Dates: start: 20030226, end: 20030226
  10. GADOLINIUM (UNSPECIFIED) [Suspect]
     Route: 042
     Dates: start: 20040303, end: 20040303
  11. GADOLINIUM (UNSPECIFIED) [Suspect]
     Route: 042
     Dates: start: 20040410, end: 20040410
  12. GADOLINIUM (UNSPECIFIED) [Suspect]
     Route: 042
     Dates: start: 20051122, end: 20051122
  13. GADOLINIUM (UNSPECIFIED) [Suspect]
     Route: 042
     Dates: start: 20060305, end: 20060305
  14. GADOLINIUM (UNSPECIFIED) [Suspect]
     Route: 042
     Dates: start: 20060316, end: 20060316
  15. GADOLINIUM (UNSPECIFIED) [Suspect]
     Route: 042
     Dates: start: 20060809, end: 20060809
  16. GADOLINIUM (UNSPECIFIED) [Suspect]
     Route: 042
     Dates: start: 20070320, end: 20070320
  17. GADOLINIUM (UNSPECIFIED) [Suspect]
     Route: 042
     Dates: start: 20070529, end: 20070529
  18. GADOLINIUM (UNSPECIFIED) [Suspect]
     Route: 042
     Dates: start: 20080520, end: 20080520
  19. GADOLINIUM (UNSPECIFIED) [Suspect]
     Route: 042
     Dates: start: 20080621, end: 20080621
  20. GADOLINIUM (UNSPECIFIED) [Suspect]
     Route: 042
     Dates: start: 20080707, end: 20080707
  21. GADOLINIUM (UNSPECIFIED) [Suspect]
     Route: 042
     Dates: start: 20081016, end: 20081016
  22. GADOLINIUM (UNSPECIFIED) [Suspect]
     Route: 042
     Dates: start: 20081026, end: 20081026
  23. GADOLINIUM (UNSPECIFIED) [Suspect]
     Route: 042
     Dates: start: 20081028, end: 20081028
  24. GADOLINIUM (UNSPECIFIED) [Suspect]
     Route: 042
     Dates: start: 20081114, end: 20081114
  25. GADOLINIUM (UNSPECIFIED) [Suspect]
     Route: 042
     Dates: start: 20090205, end: 20090205
  26. GADOLINIUM (UNSPECIFIED) [Suspect]
     Route: 042
     Dates: start: 20090206, end: 20090206
  27. MAGNEVIST [Suspect]
     Indication: HEADACHE
     Route: 042
     Dates: start: 20070729, end: 20070729
  28. EPOGEN [Concomitant]
     Indication: PRODUCT USED FOR UNKNOWN INDICATION
     Dates: start: 2006, end: 2007
  29. ARANESP [Concomitant]
     Indication: PRODUCT USED FOR UNKNOWN INDICATION
     Dates: start: 2006, end: 2007
  30. PREDNISONE [Concomitant]
     Indication: PRODUCT USED FOR UNKNOWN INDICATION
     Dates: start: 2006, end: 2007
  31. FERROUS SULFATE [Concomitant]
     Indication: PRODUCT USED FOR UNKNOWN INDICATION
     Dates: start: 2006, end: 2007
  32. SEVELAMER [Concomitant]
     Indication: PRODUCT USED FOR UNKNOWN INDICATION
     Dates: start: 2006, end: 2007
  33. SEVELAMER [Concomitant]
     Dates: start: 2009
  34. CINACALCET [Concomitant]
     Indication: PRODUCT USED FOR UNKNOWN INDICATION
     Dates: start: 2006, end: 2007
  35. CINACALCET [Concomitant]
     Dates: start: 2009

REACTIONS (1)
  - Nephrogenic systemic fibrosis [Not Recovered/Not Resolved]
